FAERS Safety Report 5458523-2 (Version None)
Quarter: 2007Q3

REPORT INFORMATION
  Report Type: 
  Country: None (occurrence: None)
  Receive Date: 20070919
  Receipt Date: 20070912
  Transmission Date: 20080115
  Serious: Yes (Death, Life-Threatening, Other)
  Sender: FDA-Public Use
  Company Number: HQWYE155320JUL07

PATIENT
  Sex: Female
  Weight: 46 kg

DRUGS (2)
  1. MYLOTARG [Suspect]
     Indication: ACUTE MYELOID LEUKAEMIA RECURRENT
     Route: 041
     Dates: start: 20070329, end: 20070329
  2. MYLOTARG [Suspect]
     Route: 041
     Dates: start: 20070412, end: 20070412

REACTIONS (3)
  - FEBRILE NEUTROPENIA [None]
  - SEPSIS [None]
  - VENOOCCLUSIVE LIVER DISEASE [None]
